FAERS Safety Report 16043816 (Version 2)
Quarter: 2019Q1

REPORT INFORMATION
  Report Type: Report from Study
  Country: US (occurrence: US)
  Receive Date: 20190306
  Receipt Date: 20190313
  Transmission Date: 20190418
  Serious: Yes (Other)
  Sender: FDA-Public Use
  Company Number: PHEH2019US008907

PATIENT
  Sex: Male

DRUGS (1)
  1. ENTRESTO [Suspect]
     Active Substance: SACUBITRIL\VALSARTAN
     Indication: CARDIAC FAILURE
     Dosage: 1 FD (49 MG OF SACUBITRIL/ 51 MG OF VALSARTAN )
     Route: 048

REACTIONS (14)
  - Pain of skin [Unknown]
  - Pain [Unknown]
  - Visual impairment [Unknown]
  - Gait disturbance [Unknown]
  - Amnesia [Unknown]
  - Drug ineffective [Unknown]
  - Rash [Unknown]
  - Peripheral coldness [Unknown]
  - Frostbite [Unknown]
  - Skin exfoliation [Unknown]
  - Contusion [Unknown]
  - Cardiovascular insufficiency [Unknown]
  - Skin abrasion [Unknown]
  - Fatigue [Unknown]
